FAERS Safety Report 13374675 (Version 2)
Quarter: 2017Q2

REPORT INFORMATION
  Report Type: Report from Study
  Country: US (occurrence: BR)
  Receive Date: 20170327
  Receipt Date: 20170413
  Transmission Date: 20170830
  Serious: Yes (Other)
  Sender: FDA-Public Use
  Company Number: US-SUNOVION-2017SUN001286

PATIENT
  Sex: Male

DRUGS (2)
  1. FOSTAIR [Concomitant]
     Active Substance: BECLOMETHASONE\FORMOTEROL
     Dosage: UNK
  2. GLYCOPYRROLATE. [Suspect]
     Active Substance: GLYCOPYRROLATE
     Indication: RESPIRATORY DISORDER
     Dosage: UNK
     Route: 065

REACTIONS (12)
  - Arrhythmia [Unknown]
  - Myalgia [Unknown]
  - Dizziness [Unknown]
  - Pneumonia [Unknown]
  - Asthenia [Unknown]
  - Vertigo [Unknown]
  - Muscle atrophy [Unknown]
  - Balance disorder [Recovering/Resolving]
  - Product use issue [Unknown]
  - Malaise [Unknown]
  - Weight decreased [Recovering/Resolving]
  - Gait disturbance [Unknown]

NARRATIVE: CASE EVENT DATE: 2015
